FAERS Safety Report 15408504 (Version 1)
Quarter: 2018Q3

REPORT INFORMATION
  Report Type: Spontaneous
  Country: US (occurrence: US)
  Receive Date: 20180920
  Receipt Date: 20180920
  Transmission Date: 20181010
  Serious: Yes (Hospitalization)
  Sender: FDA-Public Use
  Company Number: US-TEVA-2018-US-954682

PATIENT
  Age: 85 Year
  Sex: Male

DRUGS (23)
  1. JAKAFI [Suspect]
     Active Substance: RUXOLITINIB
     Indication: POLYCYTHAEMIA VERA
     Route: 048
     Dates: start: 20160914, end: 20170509
  2. WARFARIN [Concomitant]
     Active Substance: WARFARIN
  3. SENOKOT [Concomitant]
     Active Substance: SENNOSIDES
  4. LEVAQUIN [Suspect]
     Active Substance: LEVOFLOXACIN
     Indication: PRODUCT USED FOR UNKNOWN INDICATION
     Route: 065
  5. ASPIRIN. [Concomitant]
     Active Substance: ASPIRIN
  6. FINASTERIDE. [Concomitant]
     Active Substance: FINASTERIDE
  7. FUROSEMIDE. [Concomitant]
     Active Substance: FUROSEMIDE
  8. GABAPENTIN. [Concomitant]
     Active Substance: GABAPENTIN
  9. PROSCAR [Concomitant]
     Active Substance: FINASTERIDE
  10. POTASSIUM [Concomitant]
     Active Substance: POTASSIUM
  11. SOTALOL. [Concomitant]
     Active Substance: SOTALOL
  12. VITAMIN D [Concomitant]
     Active Substance: CHOLECALCIFEROL
  13. AMBIEN [Concomitant]
     Active Substance: ZOLPIDEM TARTRATE
  14. LACTULOSE. [Concomitant]
     Active Substance: LACTULOSE
  15. HYDROCODONE [Concomitant]
     Active Substance: HYDROCODONE
  16. DOXYCYCLINE. [Concomitant]
     Active Substance: DOXYCYCLINE
  17. HYDROCODONE/ACETAMINOPHEN [Concomitant]
     Active Substance: ACETAMINOPHEN\HYDROCODONE
  18. AMOXICILLIN. [Suspect]
     Active Substance: AMOXICILLIN
     Indication: PRODUCT USED FOR UNKNOWN INDICATION
     Route: 065
  19. JAKAFI [Suspect]
     Active Substance: RUXOLITINIB
     Route: 048
     Dates: start: 20170809
  20. VICODIN [Suspect]
     Active Substance: ACETAMINOPHEN\HYDROCODONE BITARTRATE
     Indication: HERPES ZOSTER
     Route: 065
  21. VICODIN [Suspect]
     Active Substance: ACETAMINOPHEN\HYDROCODONE BITARTRATE
     Indication: NERVE INJURY
  22. CONSTULOSE [Concomitant]
     Active Substance: LACTULOSE
  23. IMIQUIMOD. [Concomitant]
     Active Substance: IMIQUIMOD

REACTIONS (20)
  - Euphoric mood [Unknown]
  - Malaise [Unknown]
  - Decreased appetite [Not Recovered/Not Resolved]
  - Weight increased [Unknown]
  - Blood iron decreased [Unknown]
  - Fatigue [Not Recovered/Not Resolved]
  - Intervertebral disc protrusion [Unknown]
  - Back injury [Unknown]
  - Balance disorder [Not Recovered/Not Resolved]
  - Back pain [Unknown]
  - Nerve injury [Unknown]
  - Gait disturbance [Unknown]
  - Asthenia [Not Recovered/Not Resolved]
  - Herpes zoster [Unknown]
  - Gallbladder disorder [Unknown]
  - Blood count abnormal [Unknown]
  - Apathy [Not Recovered/Not Resolved]
  - Blood disorder [Unknown]
  - Anticoagulation drug level above therapeutic [Unknown]
  - Anaemia [Unknown]

NARRATIVE: CASE EVENT DATE: 2017
